FAERS Safety Report 4426702-9 (Version None)
Quarter: 2004Q3

REPORT INFORMATION
  Report Type: 
  Country: None (occurrence: None)
  Receive Date: 20040816
  Receipt Date: 20020211
  Transmission Date: 20050211
  Serious: Yes (Hospitalization)
  Sender: FDA-Public Use
  Company Number: PHEH2002US01606

PATIENT
  Age: 70 Year
  Sex: Male
  Weight: 83 kg

DRUGS (9)
  1. TEGASEROD VS PLACEBO [Suspect]
     Indication: CONSTIPATION
     Dosage: 2 MG, BID
     Route: 048
     Dates: start: 20011129, end: 20020206
  2. TEGASEROD VS PLACEBO [Suspect]
     Dosage: UNK, NO TREATMENT
     Dates: start: 20020207, end: 20020210
  3. TEGASEROD VS PLACEBO [Suspect]
     Route: 048
     Dates: start: 20020211, end: 20020221
  4. TENORMIN [Concomitant]
  5. ZESTRIL [Concomitant]
  6. CALTRATE [Concomitant]
     Indication: OSTEITIS DEFORMANS
  7. ASPIRIN [Concomitant]
  8. SYNTHROID [Concomitant]
     Indication: HYPOTHYROIDISM
  9. VIOXX [Concomitant]

REACTIONS (3)
  - NEPHROLITHIASIS [None]
  - PAIN [None]
  - SURGERY [None]
